FAERS Safety Report 8072816-4 (Version None)
Quarter: 2012Q1

REPORT INFORMATION
  Report Type: 
  Country: None (occurrence: None)
  Receive Date: 20120126
  Receipt Date: 20120118
  Transmission Date: 20120608
  Serious: Yes (Other)
  Sender: FDA-Public Use
  Company Number: US-SANOFI-AVENTIS-2011SA079943

PATIENT
  Age: 78 Year
  Sex: Male
  Weight: 90 kg

DRUGS (7)
  1. PLAVIX [Suspect]
     Indication: ANTIPHOSPHOLIPID SYNDROME
     Route: 048
     Dates: start: 20000101, end: 20040101
  2. COUMADIN [Suspect]
     Indication: ANTIPHOSPHOLIPID SYNDROME
     Route: 048
     Dates: start: 20000101
  3. PLAVIX [Suspect]
     Route: 048
     Dates: start: 20080101
  4. PLAVIX [Suspect]
     Route: 048
     Dates: start: 20080101
  5. ARIXTRA [Suspect]
     Dates: start: 20111029
  6. PLAVIX [Suspect]
     Route: 048
     Dates: start: 20000101, end: 20040101
  7. COUMADIN [Suspect]
     Indication: CARDIAC DISORDER
     Route: 048
     Dates: start: 20000101

REACTIONS (10)
  - URTICARIA [None]
  - HAEMORRHAGE [None]
  - HIP FRACTURE [None]
  - PRURITUS [None]
  - ANGINA PECTORIS [None]
  - MYOCARDIAL INFARCTION [None]
  - BODY HEIGHT DECREASED [None]
  - PIGMENTATION DISORDER [None]
  - VASCULAR STENOSIS [None]
  - ACCIDENT [None]
